FAERS Safety Report 16641796 (Version 2)
Quarter: 2019Q3

REPORT INFORMATION
  Report Type: Spontaneous
  Country: US (occurrence: US)
  Receive Date: 20190729
  Receipt Date: 20190806
  Transmission Date: 20191004
  Serious: No
  Sender: FDA-Public Use
  Company Number: US-AMGEN-USASP2019117815

PATIENT
  Age: 72 Year
  Sex: Male

DRUGS (1)
  1. REPATHA [Suspect]
     Active Substance: EVOLOCUMAB
     Indication: BLOOD CHOLESTEROL ABNORMAL
     Dosage: 140 MILLIGRAM, Q2WK
     Route: 065
     Dates: start: 201902

REACTIONS (5)
  - Therapeutic response unexpected [Unknown]
  - Dry mouth [Unknown]
  - Rash macular [Recovering/Resolving]
  - Stoma site erythema [Unknown]
  - Skin erosion [Recovering/Resolving]

NARRATIVE: CASE EVENT DATE: 2019
